FAERS Safety Report 6756645-7 (Version None)
Quarter: 2010Q2

REPORT INFORMATION
  Report Type: 
  Country: None (occurrence: None)
  Receive Date: 20100604
  Receipt Date: 20100527
  Transmission Date: 20101027
  Serious: Yes (Hospitalization)
  Sender: FDA-Public Use
  Company Number: JP-MERCK-1006USA00104

PATIENT
  Age: 77 Year
  Sex: Male
  Weight: 54 kg

DRUGS (12)
  1. JANUVIA [Suspect]
     Indication: DIABETES MELLITUS
     Route: 048
     Dates: start: 20100412, end: 20100525
  2. HACHIMI-JIO-GAN [Concomitant]
     Route: 048
     Dates: start: 20100521
  3. LAC-B [Concomitant]
     Route: 048
     Dates: start: 20100521
  4. AMLODIPINE BESYLATE [Concomitant]
     Route: 048
     Dates: start: 20100521
  5. PASETOCIN [Concomitant]
     Route: 048
     Dates: start: 20100521, end: 20100525
  6. AZUNOL (SODIUM GUALENATE) [Concomitant]
     Route: 048
     Dates: start: 20100521, end: 20100521
  7. JUVELA N [Concomitant]
     Route: 048
     Dates: start: 20100521
  8. PREDORIC [Concomitant]
     Route: 048
     Dates: start: 20100521
  9. LIPITOR [Concomitant]
     Route: 048
     Dates: start: 20100521
  10. AMARYL [Concomitant]
     Route: 048
     Dates: start: 20100521
  11. LOXONIN [Concomitant]
     Route: 048
     Dates: start: 20100521, end: 20100525
  12. ACTOS [Concomitant]
     Route: 048
     Dates: start: 20100521

REACTIONS (1)
  - PNEUMONIA [None]
